FAERS Safety Report 15546843 (Version 3)
Quarter: 2018Q4

REPORT INFORMATION
  Report Type: Report from Study
  Country: US (occurrence: US)
  Receive Date: 20181024
  Receipt Date: 20181107
  Transmission Date: 20190205
  Serious: Yes (Other)
  Sender: FDA-Public Use
  Company Number: US-TAKEDA-2018TUS020249

PATIENT
  Sex: Male

DRUGS (1)
  1. BRIGATINIB [Suspect]
     Active Substance: BRIGATINIB
     Indication: LUNG NEOPLASM MALIGNANT
     Dosage: 180 MG, QD
     Route: 048
     Dates: start: 20180404

REACTIONS (10)
  - Blepharitis [Unknown]
  - Erythema [Unknown]
  - Diarrhoea [Unknown]
  - Adverse drug reaction [Unknown]
  - Feeling abnormal [Unknown]
  - Lung neoplasm malignant [Unknown]
  - Adverse event [Unknown]
  - Hypersensitivity [Unknown]
  - Blister [Unknown]
  - Skin exfoliation [Unknown]
